FAERS Safety Report 9704037 (Version 1)
Quarter: 2013Q4

REPORT INFORMATION
  Report Type: Spontaneous
  Country: US (occurrence: None)
  Receive Date: 20131121
  Receipt Date: 20131121
  Transmission Date: 20140711
  Serious: Yes (Hospitalization)
  Sender: FDA-Public Use
  Company Number: None

PATIENT
  Age: 69 Year
  Sex: Male
  Weight: 84.9 kg

DRUGS (2)
  1. DOCETAXEL [Suspect]
     Indication: NON-SMALL CELL LUNG CANCER
     Route: 042
     Dates: start: 20131106, end: 20131106
  2. SURAMIN [Suspect]
     Indication: NON-SMALL CELL LUNG CANCER
     Route: 042
     Dates: start: 20131106, end: 20131106

REACTIONS (7)
  - Headache [None]
  - Asthenia [None]
  - Nausea [None]
  - Vomiting [None]
  - Balance disorder [None]
  - Confusional state [None]
  - Constipation [None]
